FAERS Safety Report 9338329 (Version 7)
Quarter: 2013Q4

REPORT INFORMATION
  Report Type: Spontaneous
  Country: US (occurrence: US)
  Receive Date: 20130610
  Receipt Date: 20131106
  Transmission Date: 20140711
  Serious: Yes (Death)
  Sender: FDA-Public Use
  Company Number: US-PFIZER INC-2013172484

PATIENT
  Age: 76 Year
  Sex: Male

DRUGS (2)
  1. VFEND [Suspect]
     Dosage: 200 MG, 2X/DAY
     Dates: start: 20130530, end: 20130605
  2. VFEND [Suspect]
     Dosage: 200 MG, 2X/DAY

REACTIONS (2)
  - Death [Fatal]
  - Drug intolerance [Unknown]
